FAERS Safety Report 10706518 (Version 1)
Quarter: 2015Q1

REPORT INFORMATION
  Report Type: Spontaneous
  Country: US (occurrence: US)
  Receive Date: 20150113
  Receipt Date: 20150113
  Transmission Date: 20150721
  Serious: Yes (Hospitalization)
  Sender: FDA-Public Use
  Company Number: US-JNJFOC-20150102616

PATIENT
  Age: 79 Year
  Sex: Female
  Weight: 70.76 kg

DRUGS (3)
  1. XARELTO [Suspect]
     Active Substance: RIVAROXABAN
     Indication: CEREBROVASCULAR ACCIDENT PROPHYLAXIS
     Dosage: 10 OR 15 MG
     Route: 048
     Dates: start: 201412, end: 201412
  2. TYLENOL [Concomitant]
     Active Substance: ACETAMINOPHEN
     Indication: ARTHRALGIA
     Dosage: 2 PILLS OR 1000 MG
     Route: 048
  3. XARELTO [Suspect]
     Active Substance: RIVAROXABAN
     Indication: ATRIAL FIBRILLATION
     Dosage: 10 OR 15 MG
     Route: 048
     Dates: start: 201412, end: 201412

REACTIONS (2)
  - Blood urine present [Recovered/Resolved]
  - Uterine prolapse [Recovered/Resolved]

NARRATIVE: CASE EVENT DATE: 201412
